FAERS Safety Report 5590587-8 (Version None)
Quarter: 2008Q1

REPORT INFORMATION
  Report Type: 
  Country: None (occurrence: None)
  Receive Date: 20080110
  Receipt Date: 20071227
  Transmission Date: 20080703
  Serious: Yes (Hospitalization, Other)
  Sender: FDA-Public Use
  Company Number: A-US2007-18928

PATIENT
  Age: 51 Year
  Sex: Female

DRUGS (7)
  1. TRACLEER [Suspect]
     Indication: PULMONARY HYPERTENSION
     Dosage: 125 MG, BID, ORAL
     Route: 048
     Dates: end: 20070411
  2. COUMADIN [Suspect]
     Dosage: 5
  3. NORVASC [Concomitant]
  4. CELEXA [Concomitant]
  5. DIGOXIN (BETA-ACETYLDIGOXIN) [Concomitant]
  6. LASIX [Concomitant]
  7. POTASSIUM CHLORIDE [Concomitant]

REACTIONS (3)
  - DRUG INTERACTION [None]
  - HEPATOCELLULAR INJURY [None]
  - SYNCOPE [None]
